FAERS Safety Report 5765706-0 (Version None)
Quarter: 2008Q2

REPORT INFORMATION
  Report Type: 
  Country: None (occurrence: None)
  Receive Date: 20080530
  Receipt Date: 20070417
  Transmission Date: 20081010
  Serious: Yes (Other)
  Sender: FDA-Public Use
  Company Number: 012559

PATIENT
  Age: 28 Year
  Sex: Female

DRUGS (2)
  1. MIRCETTE [Suspect]
     Indication: ORAL CONTRACEPTION
     Dosage: ORAL
     Route: 048
     Dates: start: 20040719
  2. LOESTRIN 21 1/20 [Suspect]
     Indication: ORAL CONTRACEPTION
     Dosage: ORAL
     Route: 048
     Dates: end: 20040719

REACTIONS (3)
  - CEREBROVASCULAR ACCIDENT [None]
  - HEADACHE [None]
  - METRORRHAGIA [None]
